FAERS Safety Report 4684307-9 (Version None)
Quarter: 2005Q2

REPORT INFORMATION
  Report Type: 
  Country: None (occurrence: None)
  Receive Date: 20050607
  Receipt Date: 20050429
  Transmission Date: 20051028
  Serious: Yes (Hospitalization)
  Sender: FDA-Public Use
  Company Number: 2005CG00850

PATIENT
  Age: 75 Year
  Sex: Male
  Weight: 90 kg

DRUGS (14)
  1. MOPRAL [Suspect]
     Route: 048
     Dates: start: 20030509
  2. NAROPIN [Suspect]
     Indication: POSTOPERATIVE ANALGESIA
     Route: 053
     Dates: start: 20030509
  3. LOVENOX [Suspect]
     Route: 058
     Dates: start: 20030504, end: 20030508
  4. ARIXTRA [Suspect]
     Route: 058
     Dates: start: 20030509, end: 20030514
  5. FRAGMIN [Suspect]
     Route: 058
     Dates: start: 20030515, end: 20030516
  6. PREVISCAN [Suspect]
     Route: 048
     Dates: start: 19980101
  7. TRAMADOL HCL [Suspect]
     Route: 048
     Dates: start: 20030513
  8. EFFERALGAN [Suspect]
     Route: 048
     Dates: start: 20030509
  9. VASTEN [Suspect]
  10. ALLOPURINOL [Suspect]
  11. PERFALGAN [Suspect]
     Route: 042
     Dates: start: 20030509
  12. PROFENID [Suspect]
     Route: 042
     Dates: start: 20030509
  13. ACUPAN [Suspect]
     Dates: start: 20030509
  14. CEFACIDAL [Suspect]
     Dates: start: 20030509

REACTIONS (3)
  - DEEP VEIN THROMBOSIS [None]
  - DRUG EFFECT DECREASED [None]
  - EMBOLISM [None]
